FAERS Safety Report 17845176 (Version 13)
Quarter: 2023Q2

REPORT INFORMATION
  Report Type: Report from Study
  Country: US (occurrence: US)
  Receive Date: 20200601
  Receipt Date: 20230602
  Transmission Date: 20230721
  Serious: Yes (Hospitalization, Other)
  Sender: FDA-Public Use
  Company Number: US-SHIRE-US202006457

PATIENT
  Age: 57 Year
  Sex: Female
  Weight: 114 kg

DRUGS (38)
  1. TEDUGLUTIDE [Suspect]
     Active Substance: TEDUGLUTIDE
     Indication: Short-bowel syndrome
     Dosage: 0.57 MILLIGRAM, QD
     Route: 058
     Dates: start: 20181228
  2. TEDUGLUTIDE [Suspect]
     Active Substance: TEDUGLUTIDE
     Indication: Short-bowel syndrome
     Dosage: 0.57 MILLIGRAM, QD
     Route: 058
     Dates: start: 20181228
  3. TEDUGLUTIDE [Suspect]
     Active Substance: TEDUGLUTIDE
     Indication: Short-bowel syndrome
     Dosage: 0.57 MILLIGRAM, QD
     Route: 058
     Dates: start: 20181228
  4. TEDUGLUTIDE [Suspect]
     Active Substance: TEDUGLUTIDE
     Indication: Short-bowel syndrome
     Dosage: 0.57 MILLIGRAM, QD
     Route: 058
     Dates: start: 20181228
  5. TEDUGLUTIDE [Suspect]
     Active Substance: TEDUGLUTIDE
     Indication: Electrolyte imbalance
     Dosage: 0.57 MILLIGRAM, QD
     Route: 058
  6. TEDUGLUTIDE [Suspect]
     Active Substance: TEDUGLUTIDE
     Indication: Electrolyte imbalance
     Dosage: 0.57 MILLIGRAM, QD
     Route: 058
  7. TEDUGLUTIDE [Suspect]
     Active Substance: TEDUGLUTIDE
     Indication: Electrolyte imbalance
     Dosage: 0.57 MILLIGRAM, QD
     Route: 058
  8. TEDUGLUTIDE [Suspect]
     Active Substance: TEDUGLUTIDE
     Indication: Electrolyte imbalance
     Dosage: 0.57 MILLIGRAM, QD
     Route: 058
  9. TEDUGLUTIDE [Suspect]
     Active Substance: TEDUGLUTIDE
     Dosage: 0.49 MILLILITER, QD
     Route: 058
  10. TEDUGLUTIDE [Suspect]
     Active Substance: TEDUGLUTIDE
     Dosage: 0.49 MILLILITER, QD
     Route: 058
  11. TEDUGLUTIDE [Suspect]
     Active Substance: TEDUGLUTIDE
     Dosage: 0.49 MILLILITER, QD
     Route: 058
  12. TEDUGLUTIDE [Suspect]
     Active Substance: TEDUGLUTIDE
     Dosage: 0.49 MILLILITER, QD
     Route: 058
  13. TEDUGLUTIDE [Suspect]
     Active Substance: TEDUGLUTIDE
     Dosage: 0.5 MILLILITER, QD
     Route: 058
  14. TEDUGLUTIDE [Suspect]
     Active Substance: TEDUGLUTIDE
     Dosage: 0.5 MILLILITER, QD
     Route: 058
  15. TEDUGLUTIDE [Suspect]
     Active Substance: TEDUGLUTIDE
     Dosage: 0.5 MILLILITER, QD
     Route: 058
  16. TEDUGLUTIDE [Suspect]
     Active Substance: TEDUGLUTIDE
     Dosage: 0.5 MILLILITER, QD
     Route: 058
  17. TEDUGLUTIDE [Suspect]
     Active Substance: TEDUGLUTIDE
     Dosage: 2 MILLIGRAM, QD
     Route: 058
  18. TEDUGLUTIDE [Suspect]
     Active Substance: TEDUGLUTIDE
     Dosage: 2 MILLIGRAM, QD
     Route: 058
  19. TEDUGLUTIDE [Suspect]
     Active Substance: TEDUGLUTIDE
     Dosage: 2 MILLIGRAM, QD
     Route: 058
  20. TEDUGLUTIDE [Suspect]
     Active Substance: TEDUGLUTIDE
     Dosage: 2 MILLIGRAM, QD
     Route: 058
  21. OCTREOTIDE [Suspect]
     Active Substance: OCTREOTIDE
     Indication: Product used for unknown indication
     Dosage: UNK
     Route: 065
  22. TPN [Suspect]
     Active Substance: AMINO ACIDS\DEXTROSE\ELECTROLYTES NOS\SOYBEAN OIL
     Indication: Product used for unknown indication
     Dosage: UNK
     Route: 065
  23. CHARCOAL ACTIVATED [Concomitant]
     Active Substance: ACTIVATED CHARCOAL
     Dosage: UNK
     Route: 065
  24. VITAMIN D3 [Concomitant]
     Active Substance: CHOLECALCIFEROL
     Dosage: UNK
     Route: 065
  25. VITAMIN A [Concomitant]
     Active Substance: VITAMIN A
     Dosage: 10000 INTERNATIONAL UNIT
     Route: 065
  26. POTASSIUM CHLORIDE [Concomitant]
     Active Substance: POTASSIUM CHLORIDE
     Dosage: UNK
     Route: 065
  27. THIAMINE HYDROCHLORIDE [Concomitant]
     Active Substance: THIAMINE HYDROCHLORIDE
     Dosage: UNK
     Route: 065
  28. VITAMIN C [Concomitant]
     Active Substance: ASCORBIC ACID
     Dosage: UNK
     Route: 065
  29. SODIUM CHLORIDE [Concomitant]
     Active Substance: SODIUM CHLORIDE
     Dosage: UNK
     Route: 065
  30. PROMETRIUM [Concomitant]
     Active Substance: PROGESTERONE
     Dosage: UNK
     Route: 065
  31. MIDODRINE HYDROCHLORIDE [Concomitant]
     Active Substance: MIDODRINE HYDROCHLORIDE
     Dosage: UNK
     Route: 065
  32. MAGNESIUM [Concomitant]
     Active Substance: MAGNESIUM
     Dosage: UNK
     Route: 065
  33. FERROUS SULFATE [Concomitant]
     Active Substance: FERROUS SULFATE
     Dosage: UNK
     Route: 065
  34. FAMOTIDINE [Concomitant]
     Active Substance: FAMOTIDINE
     Dosage: UNK
     Route: 065
  35. CYANOCOBALAMIN [Concomitant]
     Active Substance: CYANOCOBALAMIN
     Dosage: UNK
     Route: 065
  36. TYLENOL [Concomitant]
     Active Substance: ACETAMINOPHEN
     Dosage: UNK
     Route: 065
  37. VITAMIN B COMPLEX WITH C [Concomitant]
     Active Substance: ASCORBIC ACID\CALCIUM PANTOTHENATE\CYANOCOBALAMIN\NIACINAMIDE\PYRIDOXINE HYDROCHLORIDE\RIBOFLAVIN\TH
     Dosage: UNK
     Route: 065
  38. ESTROGENS [Concomitant]
     Active Substance: ESTROGENS

REACTIONS (42)
  - Brain injury [Unknown]
  - Obsessive-compulsive disorder [Unknown]
  - Mania [Unknown]
  - Mental disorder [Unknown]
  - Electrolyte imbalance [Recovering/Resolving]
  - Dislocation of vertebra [Unknown]
  - Brain oedema [Unknown]
  - Seizure [Unknown]
  - Renal failure [Unknown]
  - Chronic kidney disease [Unknown]
  - Sepsis [Recovering/Resolving]
  - Limb injury [Unknown]
  - Fatigue [Unknown]
  - Illness [Unknown]
  - Asthenia [Unknown]
  - Diarrhoea [Recovering/Resolving]
  - Food poisoning [Recovering/Resolving]
  - Weight decreased [Unknown]
  - Hernia [Unknown]
  - Stoma complication [Unknown]
  - Muscle spasms [Not Recovered/Not Resolved]
  - Blood albumin decreased [Unknown]
  - Blood magnesium decreased [Unknown]
  - Fall [Unknown]
  - Gait disturbance [Not Recovered/Not Resolved]
  - Swelling [Unknown]
  - Blood potassium decreased [Unknown]
  - Blister [Unknown]
  - Skin exfoliation [Unknown]
  - Abdominal discomfort [Unknown]
  - Bronchospasm [Unknown]
  - Inability to afford medication [Recovered/Resolved]
  - Gait inability [Recovering/Resolving]
  - Palpitations [Recovering/Resolving]
  - Multiple allergies [Recovering/Resolving]
  - Appetite disorder [Unknown]
  - Dermatitis allergic [Unknown]
  - Nasopharyngitis [Unknown]
  - Abdominal pain [Unknown]
  - Incorrect dose administered [Unknown]
  - Inappropriate schedule of product administration [Unknown]
  - Off label use [Unknown]

NARRATIVE: CASE EVENT DATE: 20211009
